FAERS Safety Report 13323340 (Version 1)
Quarter: 2017Q1

REPORT INFORMATION
  Report Type: Spontaneous
  Country: FR (occurrence: FR)
  Receive Date: 20170310
  Receipt Date: 20170310
  Transmission Date: 20170428
  Serious: Yes (Hospitalization, Other)
  Sender: FDA-Public Use
  Company Number: FR-PFIZER INC-2017105199

PATIENT
  Age: 77 Year
  Sex: Female

DRUGS (8)
  1. LAMPRENE [Suspect]
     Active Substance: CLOFAZIMINE
     Dosage: 100 MG, 1X/DAY
     Route: 048
     Dates: start: 20160611, end: 20160709
  2. AZITHROMYCIN ANHYDROUS. [Concomitant]
     Active Substance: AZITHROMYCIN ANHYDROUS
     Dosage: UNK
     Dates: start: 20160611
  3. ANSATIPINE [Suspect]
     Active Substance: RIFABUTIN
     Dosage: 300 MG, 1X/DAY
     Route: 048
     Dates: start: 20160719, end: 20160722
  4. DOLIPRANE [Concomitant]
     Active Substance: ACETAMINOPHEN
  5. AMIKACIN [Suspect]
     Active Substance: AMIKACIN
     Dosage: 530 MG, 3X/WEEK
     Route: 042
     Dates: start: 20160611, end: 20160708
  6. LAMPRENE [Suspect]
     Active Substance: CLOFAZIMINE
     Dosage: 100 MG, 1X/DAY
     Route: 048
     Dates: start: 20160719, end: 20160722
  7. ANSATIPINE [Suspect]
     Active Substance: RIFABUTIN
     Indication: FUNGAL INFECTION
     Dosage: UNK
     Route: 048
     Dates: start: 20160611, end: 20160709
  8. AMIKACIN [Suspect]
     Active Substance: AMIKACIN
     Dosage: 530 MG, 3X/WEEK
     Route: 042
     Dates: start: 20160719, end: 20160722

REACTIONS (1)
  - Hepatitis [Recovered/Resolved]

NARRATIVE: CASE EVENT DATE: 201607
